FAERS Safety Report 10722193 (Version 5)
Quarter: 2015Q1

REPORT INFORMATION
  Report Type: Spontaneous
  Country: US (occurrence: US)
  Receive Date: 20150119
  Receipt Date: 20150304
  Transmission Date: 20150721
  Serious: Yes (Hospitalization)
  Sender: FDA-Public Use
  Company Number: US-ACTELION-A-US2014-109349

PATIENT
  Age: 34 Year
  Sex: Male

DRUGS (6)
  1. XARELTO [Concomitant]
     Active Substance: RIVAROXABAN
  2. SILDENAFIL. [Concomitant]
     Active Substance: SILDENAFIL
  3. RIOCIGUAT [Suspect]
     Active Substance: RIOCIGUAT
     Indication: PRODUCT USED FOR UNKNOWN INDICATION
     Route: 065
  4. VELETRI [Suspect]
     Active Substance: EPOPROSTENOL
     Indication: PULMONARY ARTERIAL HYPERTENSION
     Dosage: 11.5 NG/KG, PER MIN
     Route: 042
     Dates: start: 20141031
  5. LETAIRIS [Concomitant]
     Active Substance: AMBRISENTAN
  6. VELETRI [Suspect]
     Active Substance: EPOPROSTENOL
     Dosage: 27.7 NG/KG, PER MIN
     Route: 042
     Dates: start: 20141103

REACTIONS (12)
  - Oedema peripheral [Not Recovered/Not Resolved]
  - Headache [Unknown]
  - Abdominal pain [Recovered/Resolved]
  - Gastrointestinal disorder [Unknown]
  - Swelling face [Not Recovered/Not Resolved]
  - Oedema [Unknown]
  - Pulmonary arterial hypertension [Unknown]
  - Abdominal distension [Unknown]
  - Dizziness [Unknown]
  - Flushing [Unknown]
  - Fatigue [Unknown]
  - Condition aggravated [Unknown]
